FAERS Safety Report 7928601-4 (Version None)
Quarter: 2011Q4

REPORT INFORMATION
  Report Type: 
  Country: None (occurrence: None)
  Receive Date: 20111118
  Receipt Date: 20111107
  Transmission Date: 20120403
  Serious: Yes (Other)
  Sender: FDA-Public Use
  Company Number: JP-CTI_01407_2011

PATIENT
  Sex: Male

DRUGS (10)
  1. MOSAPRIDE CITRATE HYDRATE [Concomitant]
     Indication: PRODUCT USED FOR UNKNOWN INDICATION
     Dosage: FREQUENCY UNKNOWN
     Route: 048
     Dates: start: 20090324
  2. LOSARTAN POTASSIUM [Concomitant]
     Indication: PRODUCT USED FOR UNKNOWN INDICATION
     Dosage: FREQUENCY UNKNOWN
     Route: 048
     Dates: start: 20090324
  3. ASPIRIN [Concomitant]
     Indication: PRODUCT USED FOR UNKNOWN INDICATION
     Dosage: FREQUENCY UNKNOWN
     Route: 048
     Dates: start: 20090324
  4. VALPROATE SODIUM [Concomitant]
     Indication: PRODUCT USED FOR UNKNOWN INDICATION
     Dosage: FREQUENCY UNKNOWN
     Route: 048
     Dates: start: 20110412
  5. LANSOPRAZOLE [Concomitant]
     Indication: PRODUCT USED FOR UNKNOWN INDICATION
     Dosage: FREQUENCY UNKNOWN
     Route: 048
     Dates: start: 20090324
  6. METFORMIN HCL [Concomitant]
     Indication: PRODUCT USED FOR UNKNOWN INDICATION
     Dosage: FREQUENCY UNKNOWN
     Route: 048
     Dates: start: 20110324
  7. WARFARIN SODIUM [Concomitant]
     Indication: PRODUCT USED FOR UNKNOWN INDICATION
     Dosage: FREQUENCY UNKNOWN
     Route: 048
     Dates: start: 20090324
  8. MEIACT MS - CEFDITOREN PIVOXIL [Suspect]
     Indication: INFECTED DERMAL CYST
     Dosage: 300 MG/DAY IN THREE DIVIDED DOSES
     Route: 048
     Dates: start: 20110902, end: 20110904
  9. PAROXETINE HYDROCHLORIDE [Concomitant]
     Indication: PRODUCT USED FOR UNKNOWN INDICATION
     Dosage: FREQUENCY UNKNOWN
     Route: 048
     Dates: start: 20110101
  10. CLONAZEPAM [Concomitant]
     Indication: INFECTED DERMAL CYST
     Route: 048
     Dates: start: 20090324

REACTIONS (9)
  - HYPERSENSITIVITY [None]
  - FLUSHING [None]
  - PETECHIAE [None]
  - PRURITUS [None]
  - RESTLESSNESS [None]
  - DRUG ERUPTION [None]
  - SKIN EROSION [None]
  - ERYTHEMA [None]
  - WHEEZING [None]
